FAERS Safety Report 5607534-2 (Version None)
Quarter: 2008Q1

REPORT INFORMATION
  Report Type: 
  Country: None (occurrence: None)
  Receive Date: 20080130
  Receipt Date: 20080122
  Transmission Date: 20080703
  Serious: Yes (Hospitalization)
  Sender: FDA-Public Use
  Company Number: PHBS2008IT01302

PATIENT
  Age: 71 Year
  Sex: Female

DRUGS (4)
  1. TOLEP [Suspect]
     Indication: PARTIAL SEIZURES
     Dosage: 600 MG/DAY
     Route: 048
     Dates: start: 20071222, end: 20080111
  2. ALCOVER [Concomitant]
     Dates: start: 20071220, end: 20080111
  3. ALCOVER [Concomitant]
     Dosage: 5 ML, BID
     Route: 048
     Dates: start: 20080112
  4. ASPIRIN [Concomitant]

REACTIONS (1)
  - PLATELET COUNT DECREASED [None]
